FAERS Safety Report 12582430 (Version 1)
Quarter: 2016Q3

REPORT INFORMATION
  Report Type: Spontaneous
  Country: US (occurrence: US)
  Receive Date: 20160722
  Receipt Date: 20160722
  Transmission Date: 20161109
  Serious: Yes (Other)
  Sender: FDA-Public Use
  Company Number: US-ROCHE-1799577

PATIENT
  Sex: Male

DRUGS (1)
  1. ZELBORAF [Suspect]
     Active Substance: VEMURAFENIB
     Indication: CENTRAL NERVOUS SYSTEM MELANOMA
     Route: 065

REACTIONS (3)
  - Confusional state [Unknown]
  - Encephalopathy [Unknown]
  - Mental status changes [Unknown]
